FAERS Safety Report 5378129-3 (Version None)
Quarter: 2007Q3

REPORT INFORMATION
  Report Type: 
  Country: None (occurrence: None)
  Receive Date: 20070705
  Receipt Date: 20070625
  Transmission Date: 20080115
  Serious: Yes (Hospitalization, Disabling)
  Sender: FDA-Public Use
  Company Number: PHBS2007ES10601

PATIENT
  Age: 78 Year
  Sex: Female

DRUGS (1)
  1. ZOMETA [Suspect]
     Indication: BREAST CANCER FEMALE
     Dosage: 4 MG/DAY
     Route: 042
     Dates: start: 20020627, end: 20061201

REACTIONS (5)
  - BONE DEBRIDEMENT [None]
  - DENTAL CLEANING [None]
  - DENTAL TREATMENT [None]
  - OSTEONECROSIS [None]
  - TOOTH EXTRACTION [None]
